FAERS Safety Report 18088873 (Version 1)
Quarter: 2020Q3

REPORT INFORMATION
  Report Type: Report from Study
  Country: US (occurrence: US)
  Receive Date: 20200729
  Receipt Date: 20200729
  Transmission Date: 20201103
  Serious: Yes (Hospitalization, Other)
  Sender: FDA-Public Use
  Company Number: US-AUROBINDO-AUR-APL-2019-045458

PATIENT
  Age: 68 Year
  Sex: Male
  Weight: 73.6 kg

DRUGS (12)
  1. ERGOCALCIFEROL. [Concomitant]
     Active Substance: ERGOCALCIFEROL
     Indication: PRODUCT USED FOR UNKNOWN INDICATION
     Dosage: 1 CAPSULE BY MOUTH ONCE A WEEK.
     Route: 048
     Dates: start: 20190703
  2. FLUTICASONE PROPIONATE. [Concomitant]
     Active Substance: FLUTICASONE PROPIONATE
     Indication: RHINITIS
     Dosage: 1 SPRAY INTO EACH NOSTRIL DAILY AS NEEDED
     Route: 045
  3. LEVOFLOXACIN. [Concomitant]
     Active Substance: LEVOFLOXACIN
     Indication: PRODUCT USED FOR UNKNOWN INDICATION
     Dosage: UNK
     Route: 065
  4. EVOMELA [Suspect]
     Active Substance: MELPHALAN HYDROCHLORIDE
     Dosage: 200 MILLIGRAM/SQ. METER (DAY 3)
     Route: 042
     Dates: start: 20190716, end: 20190716
  5. ACYCLOVIR. [Concomitant]
     Active Substance: ACYCLOVIR
     Indication: STEM CELL TRANSPLANT
     Dosage: 400 MILLIGRAM, 3 TIMES A DAY
     Route: 048
     Dates: start: 20190709
  6. PROCHLORPERAZINE. [Concomitant]
     Active Substance: PROCHLORPERAZINE
     Indication: NAUSEA
     Dosage: 10 MILLIGRAM, EVERY 6 HOURS AS NEEDED
     Route: 048
     Dates: start: 20190729
  7. TIMOLOL. [Concomitant]
     Active Substance: TIMOLOL
     Indication: PRODUCT USED FOR UNKNOWN INDICATION
     Dosage: 1 DROP TO BOTH EYES EVERY DAY
     Route: 065
     Dates: start: 20190414
  8. OLMESARTAN [Concomitant]
     Active Substance: OLMESARTAN
     Indication: PRODUCT USED FOR UNKNOWN INDICATION
     Dosage: 20 MILLIGRAM TAKE 1/2 TABLET EVERY DAY
     Route: 048
     Dates: start: 20190730
  9. EVOMELA [Suspect]
     Active Substance: MELPHALAN HYDROCHLORIDE
     Indication: PRIMARY AMYLOIDOSIS
     Dosage: 200 MILLIGRAM/SQ. METER (DAY 2)
     Route: 042
     Dates: start: 20190715, end: 20190715
  10. NIFEDIPINE. [Concomitant]
     Active Substance: NIFEDIPINE
     Indication: PRODUCT USED FOR UNKNOWN INDICATION
     Dosage: UNK
     Route: 065
  11. PANTOPRAZOLE [Concomitant]
     Active Substance: PANTOPRAZOLE
     Indication: PRODUCT USED FOR UNKNOWN INDICATION
     Dosage: 1 TABLET BY MOUTH DAILY
     Route: 048
     Dates: start: 20190709, end: 20200708
  12. LORATADINE. [Concomitant]
     Active Substance: LORATADINE
     Indication: PRODUCT USED FOR UNKNOWN INDICATION
     Dosage: UNK
     Route: 065
     Dates: start: 20190411

REACTIONS (27)
  - Bone pain [Recovered/Resolved]
  - Chronic kidney disease [Not Recovered/Not Resolved]
  - Constipation [Recovered/Resolved]
  - Blood creatinine increased [Not Recovered/Not Resolved]
  - Muscular weakness [Recovered/Resolved]
  - Anaemia [Recovered/Resolved]
  - Fatigue [Not Recovered/Not Resolved]
  - Pyrexia [Recovered/Resolved]
  - Hyperglycaemia [Not Recovered/Not Resolved]
  - Headache [Not Recovered/Not Resolved]
  - Hiccups [Not Recovered/Not Resolved]
  - Hypermagnesaemia [Recovered/Resolved]
  - Lymphocyte count decreased [Not Recovered/Not Resolved]
  - Swelling [Not Recovered/Not Resolved]
  - Abdominal pain [Recovered/Resolved]
  - Blood cholesterol increased [Recovered/Resolved]
  - Hypophosphataemia [Recovered/Resolved]
  - Platelet count decreased [Not Recovered/Not Resolved]
  - Febrile neutropenia [Recovered/Resolved]
  - Diarrhoea [Recovered/Resolved]
  - Hypoalbuminaemia [Not Recovered/Not Resolved]
  - Hyponatraemia [Recovered/Resolved]
  - White blood cell count [Recovered/Resolved]
  - Abdominal distension [Not Recovered/Not Resolved]
  - Blood alkaline phosphatase [Not Recovered/Not Resolved]
  - Dysgeusia [Recovered/Resolved]
  - Nausea [Recovered/Resolved]

NARRATIVE: CASE EVENT DATE: 20190708
